FAERS Safety Report 6124955-2 (Version None)
Quarter: 2009Q1

REPORT INFORMATION
  Report Type: 
  Country: None (occurrence: None)
  Receive Date: 20090319
  Receipt Date: 20090315
  Transmission Date: 20090719
  Serious: No
  Sender: FDA-Public Use
  Company Number: US-B.I. PHARMACEUTICALS,INC./RIDGEFIELD-2009-BP-03225BP

PATIENT
  Age: 20 Year
  Sex: Female

DRUGS (1)
  1. ZANTAC 150 [Suspect]
     Indication: HYPERCHLORHYDRIA
     Dosage: 150MG
     Route: 048
     Dates: start: 20090310, end: 20090310

REACTIONS (14)
  - ABDOMINAL DISTENSION [None]
  - ABDOMINAL PAIN UPPER [None]
  - ANOREXIA [None]
  - ASTHENIA [None]
  - CYSTITIS [None]
  - EATING DISORDER [None]
  - FEELING ABNORMAL [None]
  - IMPAIRED WORK ABILITY [None]
  - LOSS OF CONSCIOUSNESS [None]
  - PAIN IN EXTREMITY [None]
  - PELVIC PAIN [None]
  - SOMNOLENCE [None]
  - URINARY TRACT INFECTION [None]
  - VAGINAL INFECTION [None]
